FAERS Safety Report 7581189-2 (Version None)
Quarter: 2011Q2

REPORT INFORMATION
  Report Type: 
  Country: None (occurrence: None)
  Receive Date: 20110629
  Receipt Date: 20110620
  Transmission Date: 20111010
  Serious: Yes (Death)
  Sender: FDA-Public Use
  Company Number: BE-UCBSA-031326

PATIENT
  Age: 55 Year
  Sex: Male

DRUGS (1)
  1. LACOSAMIDE [Suspect]
     Indication: STATUS EPILEPTICUS
     Route: 042

REACTIONS (1)
  - STATUS EPILEPTICUS [None]
